FAERS Safety Report 14740948 (Version 1)
Quarter: 2018Q2

REPORT INFORMATION
  Report Type: Spontaneous
  Country: US (occurrence: US)
  Receive Date: 20180410
  Receipt Date: 20180410
  Transmission Date: 20180711
  Serious: Yes (Other)
  Sender: FDA-Public Use
  Company Number: US-TEVA-792936USA

PATIENT
  Age: 81 Year
  Sex: Male
  Weight: 67 kg

DRUGS (5)
  1. CINQAIR [Suspect]
     Active Substance: RESLIZUMAB
     Indication: ASTHMA
     Dosage: LAST DOSE PRIOR TO FULL BODY RASH: 24-MAY-2017.
     Route: 042
     Dates: start: 20170427, end: 20170605
  2. XOLAIR [Concomitant]
     Active Substance: OMALIZUMAB
     Dates: start: 2005
  3. ALBUTEROL. [Concomitant]
     Active Substance: ALBUTEROL
  4. HYDROXYZINE [Concomitant]
     Active Substance: HYDROXYZINE HYDROCHLORIDE
  5. ZYRTEC [Concomitant]
     Active Substance: CETIRIZINE HYDROCHLORIDE

REACTIONS (3)
  - Fatigue [Unknown]
  - Respiratory distress [Unknown]
  - Rash generalised [Recovered/Resolved with Sequelae]

NARRATIVE: CASE EVENT DATE: 20170531
